FAERS Safety Report 10046983 (Version 2)
Quarter: 2014Q2

REPORT INFORMATION
  Report Type: Spontaneous
  Country: DE (occurrence: None)
  Receive Date: 20140327
  Receipt Date: 20140424
  Transmission Date: 20141212
  Serious: Yes (Hospitalization)
  Sender: FDA-Public Use
  Company Number: 2014P1002430

PATIENT
  Age: 70 Year
  Sex: Male

DRUGS (7)
  1. GLYBURIDE [Suspect]
     Indication: TYPE 2 DIABETES MELLITUS
     Dates: start: 201110, end: 20120111
  2. NEXAVAR (SORAFENIB) [Suspect]
     Indication: HEPATOCELLULAR CARCINOMA
     Dates: start: 20120110
  3. PROPRANOLOL [Suspect]
  4. TORASEMIDE [Suspect]
  5. AMLODIPINE [Suspect]
  6. RAMIPRIL [Concomitant]
  7. NOVAMINSULFON [Concomitant]

REACTIONS (9)
  - Disorientation [None]
  - Somnolence [None]
  - Hypoglycaemia [None]
  - Hepatic cirrhosis [None]
  - Hepatorenal syndrome [None]
  - Hepatic encephalopathy [None]
  - Portal vein thrombosis [None]
  - Drug interaction [None]
  - Condition aggravated [None]
